FAERS Safety Report 7005267-1 (Version None)
Quarter: 2010Q3

REPORT INFORMATION
  Report Type: 
  Country: None (occurrence: None)
  Receive Date: 20100921
  Receipt Date: 20100914
  Transmission Date: 20110219
  Serious: Yes (Hospitalization, Other)
  Sender: FDA-Public Use
  Company Number: PHHO2010JP07419

PATIENT
  Sex: Male
  Weight: 56 kg

DRUGS (15)
  1. ALISKIREN ALI+TAB+CF [Suspect]
     Dosage: UNK
     Route: 048
     Dates: start: 20100323, end: 20100513
  2. ALISKIREN ALI+TAB+CF [Suspect]
     Dosage: UNK
     Dates: start: 20100514, end: 20100607
  3. ALISKIREN ALI+TAB+CF [Suspect]
     Dosage: UNK
     Route: 048
     Dates: start: 20100608
  4. COMPARATOR ENALAPRIL [Suspect]
     Indication: CARDIAC FAILURE
     Dosage: 10 MG,
     Route: 048
     Dates: start: 20100210, end: 20100215
  5. COMPARATOR ENALAPRIL [Suspect]
     Dosage: 20 MG
     Route: 048
     Dates: start: 20100216, end: 20100322
  6. COMPARATOR ENALAPRIL [Suspect]
     Dosage: UNK
     Route: 048
     Dates: start: 20100608
  7. ALISKIREN [Suspect]
     Indication: CARDIAC FAILURE
     Dosage: 150 MG
     Route: 048
     Dates: start: 20100302, end: 20100322
  8. ASPIRIN [Suspect]
     Indication: CEREBRAL INFARCTION
     Dosage: UNK
     Route: 048
     Dates: start: 20061217, end: 20100506
  9. ARTIST [Concomitant]
     Indication: CARDIAC FAILURE CHRONIC
  10. AMARYL [Concomitant]
     Indication: DIABETES MELLITUS
  11. ANCARON [Concomitant]
     Indication: VENTRICULAR EXTRASYSTOLES
  12. ALOSITOL [Concomitant]
     Indication: HYPERURICAEMIA
  13. WARFARIN POTASSIUM [Concomitant]
     Indication: ATRIAL FIBRILLATION
  14. GLORIAMIN [Concomitant]
  15. RENIVACE [Concomitant]

REACTIONS (14)
  - CARDIAC FAILURE CHRONIC [None]
  - DECREASED APPETITE [None]
  - FACE OEDEMA [None]
  - GASTRIC NEOPLASM [None]
  - GASTRIC ULCER [None]
  - MALAISE [None]
  - NAUSEA [None]
  - OEDEMA [None]
  - OEDEMA PERIPHERAL [None]
  - OESOPHAGEAL NEOPLASM [None]
  - OESOPHAGEAL ULCER [None]
  - PLEURAL EFFUSION [None]
  - VOMITING [None]
  - WEIGHT INCREASED [None]
